FAERS Safety Report 9214961 (Version 1)
Quarter: 2013Q2

REPORT INFORMATION
  Report Type: Spontaneous
  Country: CH (occurrence: CH)
  Receive Date: 20130405
  Receipt Date: 20130405
  Transmission Date: 20140414
  Serious: Yes (Hospitalization)
  Sender: FDA-Public Use
  Company Number: CH-GLAXOSMITHKLINE-B0880879A

PATIENT
  Age: 68 Year
  Sex: Female

DRUGS (5)
  1. ZOVIRAX [Suspect]
     Indication: PRODUCT USED FOR UNKNOWN INDICATION
     Dosage: 700MG THREE TIMES PER DAY
     Route: 048
     Dates: start: 20130130, end: 20130205
  2. ASPIRIN CARDIO [Concomitant]
     Dosage: 100MG PER DAY
     Route: 048
  3. ENALAPRIL MALEATE [Concomitant]
     Dosage: 5MG PER DAY
     Route: 048
  4. BELOC [Concomitant]
     Dosage: 50MG PER DAY
     Route: 048
  5. TRITTICO [Concomitant]
     Dosage: 50MG PER DAY
     Route: 048

REACTIONS (2)
  - Renal failure acute [Recovered/Resolved]
  - Cognitive disorder [Recovered/Resolved]
